FAERS Safety Report 25277702 (Version 1)
Quarter: 2025Q2

REPORT INFORMATION
  Report Type: Spontaneous
  Country: US (occurrence: US)
  Receive Date: 20250507
  Receipt Date: 20250507
  Transmission Date: 20250717
  Serious: No
  Sender: APOTEX
  Company Number: US-APOTEX-2025AP006491

PATIENT
  Sex: Female

DRUGS (2)
  1. AZELASTINE [Suspect]
     Active Substance: AZELASTINE
     Indication: Product used for unknown indication
     Route: 065
  2. DUPIXENT [Suspect]
     Active Substance: DUPILUMAB
     Indication: Nasal polyps
     Dosage: 300 MICROGRAM, Q.O.WK.
     Route: 058

REACTIONS (6)
  - Pharyngeal swelling [Recovered/Resolved]
  - Dysphagia [Recovered/Resolved]
  - Dry eye [Unknown]
  - Dry throat [Unknown]
  - Throat irritation [Recovered/Resolved]
  - Pruritus [Recovered/Resolved]
